FAERS Safety Report 7581929-2 (Version None)
Quarter: 2011Q2

REPORT INFORMATION
  Report Type: 
  Country: None (occurrence: None)
  Receive Date: 20110629
  Receipt Date: 20110627
  Transmission Date: 20111010
  Serious: Yes (Death, Hospitalization)
  Sender: FDA-Public Use
  Company Number: US-CELGENEUS-163-21880-11053044

PATIENT
  Sex: Female
  Weight: 68.8 kg

DRUGS (50)
  1. ALTEPLASE [Concomitant]
     Dosage: 2 MILLIGRAM
     Route: 051
     Dates: start: 20110501, end: 20110526
  2. LANOXIN [Concomitant]
     Dosage: .125 MILLIGRAM
     Route: 048
     Dates: start: 20110501, end: 20110526
  3. FEOSOL [Concomitant]
     Indication: PANCYTOPENIA
     Dosage: 325 MILLIGRAM
     Route: 048
  4. CRESTOR [Concomitant]
     Dosage: 10 MILLIGRAM
     Route: 048
  5. AMBIEN [Concomitant]
     Dosage: 5 MILLIGRAM
     Route: 048
     Dates: start: 20110501, end: 20110525
  6. AMBIEN [Concomitant]
     Dosage: 5 MILLIGRAM
     Route: 048
     Dates: start: 20110101, end: 20110603
  7. PIPERACILLIN AND TAZOBACTAM [Concomitant]
     Dosage: 3.375 GRAM
     Route: 048
     Dates: start: 20110101, end: 20110603
  8. LANOXIN [Concomitant]
     Dosage: .125 MILLIGRAM
     Route: 048
     Dates: start: 20110101, end: 20110601
  9. LASIX [Concomitant]
     Dosage: 10 MILLIGRAM
     Route: 051
     Dates: start: 20110522, end: 20110522
  10. TOPROL-XL [Concomitant]
     Dosage: 50 MILLIGRAM
     Route: 048
  11. LEVAQUIN [Concomitant]
     Dosage: 750 MILLIGRAM
     Route: 051
  12. SODIUM CHLORIDE [Concomitant]
     Dosage: 500 MILLILITER
     Route: 051
  13. TYLENOL-500 [Concomitant]
     Dosage: 650 MILLIGRAM
     Route: 048
  14. PLATELETS [Concomitant]
     Indication: THROMBOCYTOPENIA
     Dosage: 2 UNITS
     Route: 051
     Dates: start: 20110514, end: 20110514
  15. MILK OF MAGNESIA TAB [Concomitant]
     Indication: CONSTIPATION
     Route: 065
     Dates: start: 20110501
  16. LASIX [Concomitant]
     Dosage: 20 MILLIGRAM
     Route: 048
  17. VICODIN [Concomitant]
     Dosage: 5-500MG
     Route: 048
     Dates: start: 20110501, end: 20110526
  18. MAXIPIME [Concomitant]
     Dosage: 2 GRAM
     Route: 051
  19. MENINGOCOCCAL POLYSACCHARIDE [Suspect]
     Route: 030
     Dates: start: 20110412, end: 20110412
  20. PNEUMOCOCCAL POLYVALENT [Suspect]
     Route: 065
     Dates: start: 20110413, end: 20110413
  21. SENNA [Concomitant]
     Dosage: 2 MILLIGRAM
     Route: 048
     Dates: start: 20110501, end: 20110526
  22. DOCUSATE [Concomitant]
     Dosage: 250 MILLIGRAM
     Route: 048
     Dates: start: 20110501, end: 20110526
  23. LAXATIVE [Concomitant]
     Indication: CONSTIPATION
     Route: 065
     Dates: start: 20110501
  24. ZOFRAN [Concomitant]
     Dosage: 4 MILLIGRAM
     Route: 051
     Dates: start: 20110101, end: 20110519
  25. PROTONIX [Concomitant]
     Indication: THROMBOCYTOPENIA
     Dosage: 40 MILLIGRAM
     Route: 048
     Dates: start: 20110501, end: 20110526
  26. PROTONIX [Concomitant]
     Dosage: 40 MILLIGRAM
     Route: 048
     Dates: start: 20110101, end: 20110602
  27. TRAZODONE HCL [Concomitant]
     Dosage: 25 MILLIGRAM
     Route: 048
  28. OLANZAPINE [Concomitant]
     Dosage: 5 MILLIGRAM
     Route: 048
     Dates: start: 20110101
  29. FLAGYL [Concomitant]
     Dosage: 500 MILLIGRAM
     Route: 051
     Dates: start: 20110101, end: 20110603
  30. AMINOCAPROIC ACID [Concomitant]
     Dosage: 10 G/25ML/HR
     Route: 051
     Dates: start: 20110501, end: 20110527
  31. ACYCLOVIR [Concomitant]
     Dosage: 400 MILLIGRAM
     Route: 048
     Dates: start: 20110501, end: 20110526
  32. AUGMENTIN '125' [Concomitant]
     Indication: PAROTITIS
     Route: 065
     Dates: start: 20110101
  33. K-TAB [Concomitant]
     Dosage: 10 MILLIEQUIVALENTS
     Route: 048
  34. RED BLOOD CELLS [Concomitant]
     Dosage: 2 UNITS
     Route: 051
     Dates: start: 20110512, end: 20110512
  35. OCEAN [Concomitant]
     Dosage: 2-3 SPRAYS
     Route: 045
  36. REVLIMID [Suspect]
     Dosage: 50 MILLIGRAM
     Route: 048
     Dates: start: 20110318
  37. AZACITIDINE [Suspect]
     Route: 065
     Dates: start: 20110318
  38. ACYCLOVIR [Concomitant]
     Dosage: 400 MILLIGRAM
     Route: 048
     Dates: start: 20110101, end: 20110602
  39. PLATELETS [Concomitant]
     Dosage: 2 UNITS
     Route: 051
     Dates: start: 20110511, end: 20110511
  40. OXYGEN [Concomitant]
     Dosage: 2 LITERS
     Route: 045
     Dates: start: 20110501
  41. FOLTX [Concomitant]
     Route: 048
  42. PLATELETS [Concomitant]
     Dosage: 1 UNIT
     Route: 051
     Dates: start: 20110501, end: 20110501
  43. ZOVIRAX [Concomitant]
     Dosage: 800 MILLIGRAM
     Route: 048
  44. ATIVAN [Concomitant]
     Dosage: 1 MILLIGRAM
     Route: 048
     Dates: start: 20110501, end: 20110526
  45. ATIVAN [Concomitant]
     Dosage: 1 MILLIGRAM
     Route: 048
     Dates: start: 20110101, end: 20110603
  46. BENADRYL [Concomitant]
     Dosage: 25 MILLIGRAM
     Route: 048
  47. RED BLOOD CELLS [Concomitant]
     Dosage: 1 UNIT
     Route: 051
     Dates: start: 20110515, end: 20110515
  48. PIPERACILLIN AND TAZOBACTAM [Concomitant]
     Dosage: 3.375 GRAM
     Route: 048
     Dates: start: 20110501, end: 20110527
  49. AMICAR [Concomitant]
     Dosage: 1 GRAM
     Route: 051
  50. DEXTROSE [Concomitant]
     Dosage: 100 MILLILITER
     Route: 051

REACTIONS (4)
  - THROMBOCYTOPENIA [None]
  - ATRIAL FIBRILLATION [None]
  - ANXIETY [None]
  - ASTHENIA [None]
